FAERS Safety Report 6453380-X (Version None)
Quarter: 2009Q4

REPORT INFORMATION
  Report Type: 
  Country: None (occurrence: None)
  Receive Date: 20091123
  Receipt Date: 20091123
  Transmission Date: 20100525
  Serious: Yes (Hospitalization, Other)
  Sender: FDA-Public Use
  Company Number: None

PATIENT
  Age: 37 Year
  Sex: Female
  Weight: 58.9676 kg

DRUGS (1)
  1. PRISTIQ [Suspect]
     Indication: PANIC DISORDER
     Dosage: 50 MG ONCE DAILY PO
     Route: 048
     Dates: start: 20090915, end: 20091115

REACTIONS (9)
  - ACTIVITIES OF DAILY LIVING IMPAIRED [None]
  - DECREASED APPETITE [None]
  - DEPRESSION [None]
  - DIARRHOEA [None]
  - NO THERAPEUTIC RESPONSE [None]
  - PANIC DISORDER [None]
  - SUICIDAL IDEATION [None]
  - WEIGHT DECREASED [None]
  - WITHDRAWAL SYNDROME [None]
